FAERS Safety Report 7392216-X (Version None)
Quarter: 2011Q2

REPORT INFORMATION
  Report Type: 
  Country: None (occurrence: None)
  Receive Date: 20110404
  Receipt Date: 20110331
  Transmission Date: 20111010
  Serious: Yes (Other)
  Sender: FDA-Public Use
  Company Number: D0070859A

PATIENT

DRUGS (5)
  1. TAVOR [Suspect]
     Route: 065
  2. ZYPREXA [Suspect]
     Route: 065
  3. ZUCLOPENTHIXOL [Suspect]
     Route: 065
  4. COMBIVIR [Suspect]
     Indication: HIV INFECTION
     Route: 048
  5. VIRAMUNE [Suspect]
     Indication: HIV INFECTION
     Route: 065

REACTIONS (3)
  - WHITE BLOOD CELL COUNT DECREASED [None]
  - DRUG INTERACTION [None]
  - HEPATIC ENZYME INCREASED [None]
